FAERS Safety Report 6577508-6 (Version None)
Quarter: 2010Q1

REPORT INFORMATION
  Report Type: 
  Country: None (occurrence: None)
  Receive Date: 20100211
  Receipt Date: 20100127
  Transmission Date: 20100710
  Serious: Yes (Death, Hospitalization)
  Sender: FDA-Public Use
  Company Number: US-ASTRAZENECA-2010SE03413

PATIENT
  Age: 75 Year
  Sex: Male
  Weight: 73 kg

DRUGS (46)
  1. CUBICIN [Suspect]
     Indication: KLEBSIELLA INFECTION
     Route: 042
     Dates: start: 20091125, end: 20091209
  2. MEROPENEM [Suspect]
     Indication: SEPSIS
     Route: 042
     Dates: start: 20091125
  3. VANCOMYCIN [Concomitant]
     Route: 042
     Dates: start: 20091111, end: 20091130
  4. VANCOMYCIN [Concomitant]
     Route: 042
     Dates: start: 20091109, end: 20091109
  5. DIFLUCAN [Concomitant]
     Route: 042
     Dates: start: 20091125
  6. ZIENAM [Concomitant]
     Route: 042
     Dates: start: 20091109, end: 20091123
  7. ERYTHROMYCIN [Concomitant]
     Route: 042
     Dates: start: 20091109
  8. SODIUM BICARBONATE [Concomitant]
     Route: 042
     Dates: start: 20091109, end: 20091109
  9. ETOMIDATE [Concomitant]
     Route: 042
     Dates: start: 20091126, end: 20091126
  10. ROCURONIUM BROMIDE [Concomitant]
     Dates: start: 20091126, end: 20091126
  11. POTASSIUM [Concomitant]
     Route: 042
     Dates: start: 20091105, end: 20091203
  12. AMIODARONE HCL [Concomitant]
  13. VASOPRESSIN [Concomitant]
     Route: 042
     Dates: start: 20091109, end: 20091111
  14. NOREPINEPHRINE [Concomitant]
  15. EPINEPHRINE [Concomitant]
  16. DOBUTAMINE [Concomitant]
  17. ACETYLCYSTEINE [Concomitant]
  18. MIDAZOLAM HCL [Concomitant]
  19. METAMIZOLE [Concomitant]
  20. PARACETAMOL [Concomitant]
  21. ILOPROST [Concomitant]
  22. ALBUTEROL [Concomitant]
  23. INSULIN [Concomitant]
     Route: 042
     Dates: start: 20091105, end: 20091205
  24. METOCLOPRAMIDE [Concomitant]
  25. ZOCOR [Concomitant]
     Route: 042
     Dates: start: 20091106, end: 20091113
  26. SUCRALFATE [Concomitant]
     Route: 048
     Dates: start: 20091114
  27. PIRITRAMIDE [Concomitant]
  28. PANTOPRAZOLE [Concomitant]
     Route: 042
     Dates: start: 20091106
  29. FORMOTEROL FUMARATE [Concomitant]
  30. HEPARIN [Concomitant]
  31. ACETYLSALICYLIC ACID [Concomitant]
  32. FUROSEMIDE [Concomitant]
  33. CHLORHEXIDINE GLUCONATE [Concomitant]
  34. PHYSOSTAGMINE [Concomitant]
  35. SALICYLATE [Concomitant]
  36. AMIDOTRIOZATE [Concomitant]
  37. SUFENTANIL [Concomitant]
     Route: 042
     Dates: start: 20091126, end: 20091126
  38. SUFENTANIL [Concomitant]
     Route: 042
     Dates: start: 20091109, end: 20091109
  39. ESKETAMINE [Concomitant]
  40. CHLORAL HYDRATE [Concomitant]
     Route: 042
     Dates: start: 20091114, end: 20091123
  41. VECURONIUM BROMIDE [Concomitant]
  42. ROCURONIUM [Concomitant]
  43. CALCIUM [Concomitant]
  44. MAGNESIUM [Concomitant]
     Route: 042
     Dates: start: 20091106, end: 20091106
  45. GLUCOSE [Concomitant]
     Route: 042
     Dates: start: 20091106
  46. GASTROGRAFIN /00025901/ [Concomitant]
     Dates: start: 20091112, end: 20091125

REACTIONS (3)
  - IMPAIRED HEALING [None]
  - MULTI-ORGAN FAILURE [None]
  - SEPSIS [None]
